FAERS Safety Report 9228288 (Version 2)
Quarter: 2013Q2

REPORT INFORMATION
  Report Type: Report from Study
  Country: DE (occurrence: DE)
  Receive Date: 20130412
  Receipt Date: 20130524
  Transmission Date: 20140414
  Serious: Yes (Death, Other)
  Sender: FDA-Public Use
  Company Number: DE-ROCHE-1210907

PATIENT
  Sex: 0

DRUGS (2)
  1. ALTEPLASE [Suspect]
     Indication: PERIPHERAL ISCHAEMIA
     Dosage: SINGLE SHOT DOSE
     Route: 013
  2. HEPARIN [Suspect]
     Indication: THROMBOSIS PROPHYLAXIS
     Dosage: 500 IU/H
     Route: 013

REACTIONS (5)
  - Death [Fatal]
  - Leg amputation [Unknown]
  - Ischaemia [Unknown]
  - Vascular graft occlusion [Unknown]
  - Treatment failure [Unknown]
